FAERS Safety Report 10284245 (Version 2)
Quarter: 2014Q3

REPORT INFORMATION
  Report Type: Spontaneous
  Country: IT (occurrence: IT)
  Receive Date: 20140708
  Receipt Date: 20140708
  Transmission Date: 20150326
  Serious: Yes (Disabling)
  Sender: FDA-Public Use
  Company Number: IT-TEVA-492838ISR

PATIENT
  Age: 58 Year
  Sex: Female

DRUGS (8)
  1. MICROSER [Concomitant]
  2. ALENDRONIC ACID [Suspect]
     Active Substance: ALENDRONIC ACID
     Indication: OSTEOPOROSIS
     Route: 048
     Dates: start: 19990101, end: 20070101
  3. CALCIUM SANDOZ 500 MG [Concomitant]
  4. DIBASE [Concomitant]
     Active Substance: CHOLECALCIFEROL
     Dosage: 300.000 UI/ML
     Route: 030
  5. NORVASC [Concomitant]
     Active Substance: AMLODIPINE BESYLATE
  6. METFORMIN [Concomitant]
     Active Substance: METFORMIN HYDROCHLORIDE
  7. FORSTEO [Concomitant]
     Active Substance: TERIPARATIDE
  8. RAMIPRIL. [Concomitant]
     Active Substance: RAMIPRIL

REACTIONS (1)
  - Osteonecrosis [Recovered/Resolved]

NARRATIVE: CASE EVENT DATE: 20080508
